FAERS Safety Report 18128275 (Version 1)
Quarter: 2020Q3

REPORT INFORMATION
  Report Type: Other
  Country: CA (occurrence: CA)
  Receive Date: 20200810
  Receipt Date: 20200810
  Transmission Date: 20201103
  Serious: Yes (Hospitalization, Disabling, Other)
  Sender: FDA-Public Use
  Company Number: CA-EMCURE PHARMACEUTICALS LTD-2020-EPL-001023

PATIENT
  Age: 1 Hour
  Sex: Female
  Weight: 3 kg

DRUGS (1)
  1. CITALOPRAM HYDROBROMIDE. [Suspect]
     Active Substance: CITALOPRAM HYDROBROMIDE
     Indication: PRODUCT USED FOR UNKNOWN INDICATION
     Dosage: UNK, 1 DOSE PER 1 D
     Route: 064

REACTIONS (4)
  - Hypotonia [Unknown]
  - Foetal exposure during pregnancy [Unknown]
  - Motor dysfunction [Unknown]
  - Neonatal respiratory arrest [Unknown]
